FAERS Safety Report 6903175-5 (Version None)
Quarter: 2010Q3

REPORT INFORMATION
  Report Type: 
  Country: None (occurrence: None)
  Receive Date: 20100803
  Receipt Date: 20080724
  Transmission Date: 20110219
  Serious: No
  Sender: FDA-Public Use
  Company Number: US-PFIZER INC-2008063346

PATIENT
  Sex: Female
  Weight: 62.3 kg

DRUGS (8)
  1. LYRICA [Suspect]
     Indication: FIBROMYALGIA
     Dates: start: 20080101, end: 20080701
  2. LYRICA [Suspect]
     Indication: FATIGUE
  3. WELLBUTRIN [Concomitant]
  4. DRUG, UNSPECIFIED [Concomitant]
  5. LIPITOR [Concomitant]
  6. ACETYLSALICYLIC ACID SRT [Concomitant]
  7. AMBIEN [Concomitant]
  8. NEURONTIN [Concomitant]

REACTIONS (2)
  - DEPRESSED MOOD [None]
  - DEPRESSION [None]
